FAERS Safety Report 11838898 (Version 1)
Quarter: 2015Q4

REPORT INFORMATION
  Report Type: Spontaneous
  Country: PH (occurrence: PH)
  Receive Date: 20151216
  Receipt Date: 20151216
  Transmission Date: 20160305
  Serious: Yes (Death, Hospitalization)
  Sender: FDA-Public Use
  Company Number: PH-009507513-1512PHL006781

PATIENT
  Sex: Male

DRUGS (1)
  1. JANUVIA [Suspect]
     Active Substance: SITAGLIPTIN PHOSPHATE
     Indication: DIABETES MELLITUS
     Dosage: 1 DF, ONCE A DAY
     Route: 048
     Dates: start: 2014, end: 201511

REACTIONS (4)
  - Diabetic complication [Unknown]
  - Acute respiratory failure [Fatal]
  - Cardiac arrest [Fatal]
  - Adverse event [Unknown]
